FAERS Safety Report 5563144-7 (Version None)
Quarter: 2007Q4

REPORT INFORMATION
  Report Type: 
  Country: None (occurrence: None)
  Receive Date: 20071217
  Receipt Date: 20071207
  Transmission Date: 20080405
  Serious: Yes (Life-Threatening, Hospitalization)
  Sender: FDA-Public Use
  Company Number: B0496756A

PATIENT
  Age: 40 Year
  Sex: Female

DRUGS (3)
  1. PREDNISOLONE [Suspect]
     Indication: ASTHMA
     Route: 048
     Dates: start: 20071118
  2. DOXYCYCLINE [Suspect]
     Dosage: 100MG PER DAY
     Route: 048
     Dates: start: 20071130, end: 20071206
  3. CEFTAZIDINE [Suspect]
     Dosage: 2G TWICE PER DAY
     Route: 042
     Dates: start: 20071130, end: 20071206

REACTIONS (6)
  - ANAPHYLACTIC REACTION [None]
  - ANGIOEDEMA [None]
  - ASTHMA [None]
  - HYPOTENSION [None]
  - UPPER RESPIRATORY TRACT INFECTION [None]
  - URTICARIA [None]
